FAERS Safety Report 7568604-5 (Version None)
Quarter: 2011Q2

REPORT INFORMATION
  Report Type: 
  Country: None (occurrence: None)
  Receive Date: 20110623
  Receipt Date: 20110615
  Transmission Date: 20111010
  Serious: No
  Sender: FDA-Public Use
  Company Number: US-JNJFOC-20110609774

PATIENT
  Age: 72 Year
  Sex: Female
  Weight: 68.04 kg

DRUGS (4)
  1. FENTANYL-100 [Suspect]
     Route: 062
  2. FENTANYL-100 [Suspect]
     Route: 062
     Dates: start: 20100101
  3. FENTANYL-100 [Suspect]
     Indication: ARTHRITIS
     Route: 062
  4. UNKNOWN MEDICATION [Concomitant]
     Indication: HYPERSENSITIVITY
     Route: 048

REACTIONS (5)
  - BACK PAIN [None]
  - DRUG INEFFECTIVE [None]
  - APPLICATION SITE EROSION [None]
  - WRONG TECHNIQUE IN DRUG USAGE PROCESS [None]
  - CHILLS [None]
